FAERS Safety Report 24936775 (Version 2)
Quarter: 2025Q3

REPORT INFORMATION
  Report Type: Spontaneous
  Country: US (occurrence: US)
  Receive Date: 20250206
  Receipt Date: 20250723
  Transmission Date: 20251021
  Serious: Yes (Death)
  Sender: DAIICHI
  Company Number: US-DAIICHI SANKYO, INC.-DS-2025-123720-USAA

PATIENT
  Age: 77 Year
  Sex: Female

DRUGS (1)
  1. DATROWAY [Suspect]
     Active Substance: DATOPOTAMAB DERUXTECAN-DLNK
     Indication: Endometrial cancer
     Dosage: 293.8 MG, ONCE EVERY 3 WK (INFUSE 293.8 MG INTRAVEN OUSLY EVERY 3 WEEKS)
     Route: 042
     Dates: start: 20250227, end: 20250711

REACTIONS (2)
  - Death [Fatal]
  - Off label use [Unknown]

NARRATIVE: CASE EVENT DATE: 20250131
